FAERS Safety Report 10968697 (Version 1)
Quarter: 2015Q1

REPORT INFORMATION
  Report Type: Spontaneous
  Country: BR (occurrence: US)
  Receive Date: 20150330
  Receipt Date: 20150330
  Transmission Date: 20150721
  Serious: Yes (Congenital Anomaly)
  Sender: FDA-Public Use
  Company Number: BR-009507513-1503USA011977

PATIENT
  Sex: Male

DRUGS (1)
  1. TEMODAR [Suspect]
     Active Substance: TEMOZOLOMIDE
     Dosage: UNK
     Route: 064
     Dates: end: 201306

REACTIONS (7)
  - Right ventricular dysfunction [Unknown]
  - Exposure via father [Recovered/Resolved]
  - Pulmonary valve stenosis [Unknown]
  - Teratogenicity [Unknown]
  - Cardiac disorder [Unknown]
  - Foetal exposure during pregnancy [Recovered/Resolved]
  - Double outlet right ventricle [Unknown]

NARRATIVE: CASE EVENT DATE: 201311
